FAERS Safety Report 15931586 (Version 5)
Quarter: 2021Q3

REPORT INFORMATION
  Report Type: Spontaneous
  Country: HU (occurrence: HU)
  Receive Date: 20190207
  Receipt Date: 20210727
  Transmission Date: 20211014
  Serious: Yes (Other)
  Sender: FDA-Public Use
  Company Number: HU-TEVA-2019-HU-1008384

PATIENT
  Age: 4 Year
  Sex: Male

DRUGS (3)
  1. TREXAN [Concomitant]
     Dosage: 5 MILLIGRAM DAILY;
     Dates: start: 20180504, end: 20180504
  2. NEOTIGASON [Suspect]
     Active Substance: ACITRETIN
     Indication: PUSTULAR PSORIASIS
     Dosage: 10 MILLIGRAM DAILY;
     Route: 048
     Dates: start: 20180427, end: 20180730
  3. TREXAN [Concomitant]
     Dosage: 5 MILLIGRAM DAILY;
     Dates: start: 20180427, end: 20180427

REACTIONS (2)
  - Neutropenia [Recovered/Resolved]
  - Off label use [Unknown]

NARRATIVE: CASE EVENT DATE: 20180620
